FAERS Safety Report 8196321-X (Version None)
Quarter: 2012Q1

REPORT INFORMATION
  Report Type: 
  Country: None (occurrence: None)
  Receive Date: 20120309
  Receipt Date: 20120306
  Transmission Date: 20120608
  Serious: No
  Sender: FDA-Public Use
  Company Number: US-PFIZER INC-2012018762

PATIENT
  Sex: Female
  Weight: 46.259 kg

DRUGS (4)
  1. LYRICA [Suspect]
     Indication: FIBROMYALGIA
     Dosage: 25MG IN THE MORNING, 25MG IN THE AFTERNOON AND 50MG AT NIGHT
     Route: 048
     Dates: start: 20080830
  2. ZANAFLEX [Concomitant]
     Dosage: UNK
  3. XANAX [Concomitant]
     Dosage: 0.25
  4. ALPRAZOLAM [Concomitant]
     Indication: ANXIETY
     Dosage: UNK

REACTIONS (1)
  - VITAMIN D INCREASED [None]
